FAERS Safety Report 9886596 (Version 2)
Quarter: 2014Q1

REPORT INFORMATION
  Report Type: Spontaneous
  Country: GB (occurrence: GB)
  Receive Date: 20140210
  Receipt Date: 20140210
  Transmission Date: 20141002
  Serious: Yes (Other)
  Sender: FDA-Public Use
  Company Number: GB-ABBVIE-13P-167-1113310-00

PATIENT
  Age: 62 Year
  Sex: Male

DRUGS (8)
  1. HUMIRA [Suspect]
     Indication: RHEUMATOID ARTHRITIS
     Route: 058
     Dates: end: 201308
  2. LANSOPRAZOLE [Concomitant]
     Indication: GASTROINTESTINAL DISORDER
     Route: 048
  3. LANSOPRAZOLE [Concomitant]
     Indication: PROPHYLAXIS
  4. METFORMIN [Concomitant]
     Indication: TYPE 2 DIABETES MELLITUS
     Route: 048
  5. ADALAT LA [Concomitant]
     Indication: HYPERTENSION
     Route: 048
  6. ASPIRIN [Concomitant]
     Indication: TYPE 2 DIABETES MELLITUS
     Route: 048
  7. SIMVASTATIN [Concomitant]
     Indication: TYPE 2 DIABETES MELLITUS
     Route: 048
  8. SIMVASTATIN [Concomitant]
     Indication: LIPIDS

REACTIONS (1)
  - Sperm concentration decreased [Unknown]
